FAERS Safety Report 24397924 (Version 2)
Quarter: 2024Q4

REPORT INFORMATION
  Report Type: Spontaneous
  Country: US (occurrence: US)
  Receive Date: 20241004
  Receipt Date: 20241118
  Transmission Date: 20250115
  Serious: No
  Sender: PFIZER
  Company Number: US-PFIZER INC-PV202400128442

PATIENT
  Age: 55 Year
  Sex: Female

DRUGS (2)
  1. INLYTA [Suspect]
     Active Substance: AXITINIB
     Dosage: 10 MG
     Dates: start: 20240927
  2. INLYTA [Suspect]
     Active Substance: AXITINIB
     Dosage: 5 MG, 2X/DAY (EVERY 12 HOURS)

REACTIONS (10)
  - Pain [Unknown]
  - Pyrexia [Unknown]
  - Renal pain [Unknown]
  - Blister [Unknown]
  - Oral mucosal blistering [Recovered/Resolved]
  - Irritability [Unknown]
  - Cough [Unknown]
  - Abdominal pain [Unknown]
  - Arthralgia [Unknown]
  - Headache [Recovered/Resolved]

NARRATIVE: CASE EVENT DATE: 20240101
